FAERS Safety Report 5236504-1 (Version None)
Quarter: 2007Q1

REPORT INFORMATION
  Report Type: 
  Country: None (occurrence: None)
  Receive Date: 20070212
  Receipt Date: 20070207
  Transmission Date: 20070707
  Serious: Yes (Hospitalization)
  Sender: FDA-Public Use
  Company Number: IL-MERCK-0702ISR00004

PATIENT
  Age: 65 Year
  Sex: Female

DRUGS (2)
  1. EMEND [Suspect]
     Route: 048
  2. PHENYTOIN SODIUM [Concomitant]
     Indication: EPILEPSY
     Route: 065

REACTIONS (1)
  - EPILEPSY [None]
